FAERS Safety Report 8322121-3 (Version None)
Quarter: 2012Q2

REPORT INFORMATION
  Report Type: 
  Country: None (occurrence: None)
  Receive Date: 20120430
  Receipt Date: 20120424
  Transmission Date: 20120825
  Serious: Yes (Hospitalization, Other)
  Sender: FDA-Public Use
  Company Number: US-AMGEN-USASP2011037510

PATIENT
  Age: 46 Year
  Sex: Female
  Weight: 100.23 kg

DRUGS (4)
  1. CLONIDINE [Concomitant]
     Indication: HYPERTENSION
     Dosage: 0.1 MG, BID
  2. HYDROCHLOROTHIAZIDE [Concomitant]
     Indication: HYPERTENSION
     Dosage: 25 MG, UNK
  3. ENBREL [Suspect]
     Indication: RHEUMATOID ARTHRITIS
     Dosage: 50 MG, QWK
     Dates: start: 20080101, end: 20110701
  4. AMLODIPINE [Concomitant]
     Indication: HYPERTENSION
     Dosage: 5 MG, UNK

REACTIONS (7)
  - SARCOIDOSIS [None]
  - SPINAL CORD DISORDER [None]
  - CENTRAL NERVOUS SYSTEM LESION [None]
  - PAIN [None]
  - KNEE OPERATION [None]
  - MULTIPLE SCLEROSIS [None]
  - WALKING AID USER [None]
